FAERS Safety Report 6827327 (Version 3)
Quarter: 2013Q1

REPORT INFORMATION
  Report Type: Report from Study
  Country: US (occurrence: US)
  Receive Date: 20081201
  Receipt Date: 20130131
  Transmission Date: 20140127
  Serious: Yes (Hospitalization)
  Sender: FDA-Public Use
  Company Number: US-ROCHE-598238

PATIENT
  Age: 66 Year
  Sex: Male
  Weight: 72.6 kg

DRUGS (1)
  1. CAPECITABINE [Suspect]
     Indication: NEOPLASM MALIGNANT
     Dosage: DOSE: 1150 MG AM+1150 MG PM; SUCCESSFULLY COMPLETED 6 CYCLES
     Route: 048

REACTIONS (4)
  - Fall [Unknown]
  - Balance disorder [Unknown]
  - Traumatic lung injury [Unknown]
  - Rib fracture [Unknown]
